FAERS Safety Report 22147752 (Version 5)
Quarter: 2023Q2

REPORT INFORMATION
  Report Type: Spontaneous
  Country: US (occurrence: US)
  Receive Date: 20230328
  Receipt Date: 20230501
  Transmission Date: 20230722
  Serious: Yes (Hospitalization, Other)
  Sender: FDA-Public Use
  Company Number: US-GILEAD-2023-0621875

PATIENT
  Age: 73 Year
  Sex: Male

DRUGS (11)
  1. RANEXA [Suspect]
     Active Substance: RANOLAZINE
     Indication: Chest pain
     Dosage: 500 MG
     Route: 065
  2. ENZALUTAMIDE [Suspect]
     Active Substance: ENZALUTAMIDE
     Indication: Prostate cancer metastatic
     Dosage: 160 MG, QD
     Route: 065
     Dates: start: 20180613
  3. ENZALUTAMIDE [Suspect]
     Active Substance: ENZALUTAMIDE
     Dosage: 80 MG, UNK
     Route: 065
  4. ENZALUTAMIDE [Suspect]
     Active Substance: ENZALUTAMIDE
     Dosage: 120 MG, QD
     Route: 048
     Dates: start: 20200519
  5. ENZALUTAMIDE [Suspect]
     Active Substance: ENZALUTAMIDE
     Dosage: 120 MG, QD
     Route: 048
     Dates: start: 20230301
  6. ISOSORBIDE MONONITRATE [Suspect]
     Active Substance: ISOSORBIDE MONONITRATE
     Indication: Dizziness
     Dosage: 30 MG
     Route: 065
  7. ZOLADEX [Concomitant]
     Active Substance: GOSERELIN ACETATE
  8. XGEVA [Concomitant]
     Active Substance: DENOSUMAB
  9. CARVEDILOL [Concomitant]
     Active Substance: CARVEDILOL
  10. GOSERELIN [Concomitant]
     Active Substance: GOSERELIN
  11. DENOSUMAB [Concomitant]
     Active Substance: DENOSUMAB

REACTIONS (8)
  - Anaphylactic shock [Unknown]
  - Chest pain [Recovered/Resolved]
  - Dizziness [Recovered/Resolved]
  - Blood pressure increased [Recovered/Resolved]
  - Hypersensitivity [Unknown]
  - Headache [Unknown]
  - Product availability issue [Unknown]
  - Off label use [Recovered/Resolved]

NARRATIVE: CASE EVENT DATE: 20180829
